FAERS Safety Report 18087272 (Version 1)
Quarter: 2020Q3

REPORT INFORMATION
  Report Type: Report from Study
  Country: None (occurrence: US)
  Receive Date: 20200729
  Receipt Date: 20200729
  Transmission Date: 20201103
  Serious: Yes (Other)
  Sender: FDA-Public Use
  Company Number: US-BIOVITRUM-2020US2394

PATIENT
  Age: 7 Year
  Sex: Male

DRUGS (1)
  1. KINERET [Suspect]
     Active Substance: ANAKINRA
     Indication: JUVENILE IDIOPATHIC ARTHRITIS
     Route: 058
     Dates: start: 20190809

REACTIONS (7)
  - Musculoskeletal stiffness [Unknown]
  - Rash [Unknown]
  - Leukopenia [Unknown]
  - Intentional product misuse [Unknown]
  - Off label use [Unknown]
  - Product dose omission issue [Unknown]
  - Neutropenia [Unknown]

NARRATIVE: CASE EVENT DATE: 20190809
